FAERS Safety Report 4824083-X (Version None)
Quarter: 2005Q4

REPORT INFORMATION
  Report Type: 
  Country: None (occurrence: None)
  Receive Date: 20051108
  Receipt Date: 20051101
  Transmission Date: 20060501
  Serious: Yes (Other)
  Sender: FDA-Public Use
  Company Number: HQWYE734905AUG05

PATIENT
  Age: 21 Year
  Sex: Male

DRUGS (3)
  1. EFFEXOR XR [Suspect]
     Dosage: 225 MG 1X PER 1 DAY, ORAL
     Route: 048
     Dates: start: 20010201
  2. LAMICTAL [Suspect]
     Indication: BIPOLAR I DISORDER
     Dosage: 300 MG 1X PER 1 DAY
     Dates: start: 20050503
  3. ADDERALL 10 [Concomitant]

REACTIONS (4)
  - BLOOD AMYLASE INCREASED [None]
  - INJURY [None]
  - PANCREATITIS [None]
  - ROAD TRAFFIC ACCIDENT [None]
